FAERS Safety Report 7651826 (Version 6)
Quarter: 2013Q3

REPORT INFORMATION
  Report Type: Report from Study
  Country: JP (occurrence: JP)
  Receive Date: 20101101
  Receipt Date: 20130911
  Transmission Date: 20140515
  Serious: Yes (Hospitalization)
  Sender: FDA-Public Use
  Company Number: JP-BRISTOL-MYERS SQUIBB COMPANY-15350051

PATIENT
  Age: 64 Year
  Sex: Male
  Weight: 69.8 kg

DRUGS (16)
  1. ABILIFY TABS [Suspect]
     Indication: SCHIZOPHRENIA
     Route: 048
     Dates: start: 20101005, end: 20101011
  2. ABILIFY TABS [Suspect]
     Indication: SCHIZOPHRENIA
     Dosage: 08JUN-30AUG10(84DAYS),27MG 31AUG-4OCT10(35D),24MG 5OCT-11OCT10(7D),30MG 12-13OCT10(2D).
     Route: 048
     Dates: start: 20100608, end: 20101013
  3. RISPERIDAL [Suspect]
     Indication: SCHIZOPHRENIA
     Dosage: TABLET:6MG:QD:ORAL:13OCT10?9MG/D
     Route: 048
     Dates: start: 20101013
  4. MYSLEE [Suspect]
     Indication: INSOMNIA
     Dosage: 12OCT10:5MG/D,13OCT:UNK:10MG/D,23OCT10:UNK:5MG/D?TABS
     Route: 048
     Dates: start: 20101012
  5. BIPERIDEN HCL [Suspect]
     Indication: PROPHYLAXIS
     Dosage: TABLET:ONG
     Route: 048
     Dates: start: 20101013
  6. VEGETAMIN-B [Suspect]
     Indication: INSOMNIA
     Dosage: TABLET:ONG
     Route: 048
     Dates: start: 20101013
  7. LENDORMIN [Suspect]
     Indication: INSOMNIA
     Dosage: TABS
     Route: 048
     Dates: start: 20101013
  8. DEPAS [Concomitant]
     Dates: start: 20100831, end: 20101011
  9. POLARAMINE [Concomitant]
     Dates: start: 20101005, end: 20101011
  10. SELBEX [Concomitant]
     Dates: start: 20080826, end: 20101011
  11. ATARAX [Concomitant]
     Dates: start: 20101007, end: 20101011
  12. HIRNAMIN [Concomitant]
     Dates: start: 20101012, end: 20101012
  13. AKINETON [Concomitant]
     Dates: start: 20101013
  14. MYSTAN [Concomitant]
     Dates: start: 20101017
  15. LODOPIN [Concomitant]
     Dates: start: 20101017
  16. PROMETHAZINE [Concomitant]
     Dates: end: 20101005

REACTIONS (2)
  - Schizophrenia [Recovered/Resolved]
  - Insomnia [Recovered/Resolved]
